FAERS Safety Report 20638643 (Version 1)
Quarter: 2022Q1

REPORT INFORMATION
  Report Type: Spontaneous
  Country: US (occurrence: US)
  Receive Date: 20220325
  Receipt Date: 20220325
  Transmission Date: 20220423
  Serious: No
  Sender: FDA-Public Use
  Company Number: US-FRESENIUS KABI-FK202203324

PATIENT

DRUGS (1)
  1. PROGESTERONE INJECTION USP [Suspect]
     Active Substance: PROGESTERONE
     Indication: Product used for unknown indication
     Dosage: UNKNOWN
     Route: 065

REACTIONS (2)
  - Injection site rash [Unknown]
  - Injection site urticaria [Unknown]
